FAERS Safety Report 4576982-4 (Version None)
Quarter: 2005Q1

REPORT INFORMATION
  Report Type: 
  Country: None (occurrence: None)
  Receive Date: 20050210
  Receipt Date: 20041213
  Transmission Date: 20050727
  Serious: Yes (Other)
  Sender: FDA-Public Use
  Company Number: FRWYE279313DEC04

PATIENT
  Sex: Male

DRUGS (8)
  1. ENBREL [Suspect]
     Indication: RHEUMATOID ARTHRITIS
     Dosage: UNKNOWN
     Route: 058
     Dates: start: 20040403
  2. NOVATREX [Suspect]
     Indication: RHEUMATOID ARTHRITIS
     Route: 048
     Dates: start: 20020401, end: 20041201
  3. VOLTAREN [Concomitant]
     Indication: RHEUMATOID ARTHRITIS
     Dosage: UNKNOWN
     Route: 048
     Dates: start: 20021201
  4. VOLTAREN [Concomitant]
     Dosage: UNKNOWN
     Route: 048
     Dates: start: 20041201
  5. ZYLORIC [Concomitant]
     Dates: start: 20020301
  6. PANTOPRAZOLE [Concomitant]
     Dates: start: 20020401
  7. TAMSULOSIN HYDROCHLORIDE [Concomitant]
     Dates: start: 20010101
  8. FOSAMAX [Concomitant]
     Dates: start: 20020801

REACTIONS (5)
  - ACUTE SINUSITIS [None]
  - ALANINE AMINOTRANSFERASE INCREASED [None]
  - ASPARTATE AMINOTRANSFERASE INCREASED [None]
  - BLOOD ALKALINE PHOSPHATASE INCREASED [None]
  - GAMMA-GLUTAMYLTRANSFERASE INCREASED [None]
